FAERS Safety Report 16353630 (Version 5)
Quarter: 2019Q3

REPORT INFORMATION
  Report Type: Spontaneous
  Country: JP (occurrence: JP)
  Receive Date: 20190524
  Receipt Date: 20190813
  Transmission Date: 20191004
  Serious: Yes (Death, Hospitalization)
  Sender: FDA-Public Use
  Company Number: JP-ASTRAZENECA-2019SE77436

PATIENT
  Age: 84 Year
  Sex: Male
  Weight: 44 kg

DRUGS (7)
  1. GASMOTIN [Concomitant]
     Active Substance: MOSAPRIDE CITRATE
     Indication: GASTRITIS
     Route: 048
     Dates: start: 20190218, end: 20190228
  2. TAGRISSO [Suspect]
     Active Substance: OSIMERTINIB
     Indication: NON-SMALL CELL LUNG CANCER
     Route: 048
     Dates: start: 20190226, end: 20190402
  3. MUCOSOLVAN [Concomitant]
     Active Substance: AMBROXOL HYDROCHLORIDE
     Indication: BRONCHITIS CHRONIC
     Route: 048
     Dates: start: 20190225, end: 20190421
  4. HOKUNALIN TAPE [Concomitant]
     Active Substance: TULOBUTEROL
     Indication: ASTHMA
     Route: 062
     Dates: start: 20190222, end: 20190421
  5. NEXIUM [Concomitant]
     Active Substance: ESOMEPRAZOLE MAGNESIUM
     Indication: GASTRITIS
     Route: 048
     Dates: start: 20190222, end: 20190314
  6. CELECOX [Concomitant]
     Active Substance: CELECOXIB
     Indication: PAIN
     Route: 048
     Dates: start: 20190215, end: 20190330
  7. ZINC ACETATE [Concomitant]
     Active Substance: ZINC ACETATE
     Indication: HYPOZINCAEMIA
     Route: 048
     Dates: start: 20190222, end: 20190314

REACTIONS (4)
  - Interstitial lung disease [Recovering/Resolving]
  - Rash pruritic [Recovered/Resolved]
  - Pneumonia aspiration [Fatal]
  - Erythema [Recovered/Resolved]

NARRATIVE: CASE EVENT DATE: 20190227
